FAERS Safety Report 16782708 (Version 4)
Quarter: 2020Q3

REPORT INFORMATION
  Report Type: Spontaneous
  Country: IT (occurrence: IT)
  Receive Date: 20190906
  Receipt Date: 20200820
  Transmission Date: 20201102
  Serious: Yes (Hospitalization, Other)
  Sender: FDA-Public Use
  Company Number: IT-SHIRE-IT201928929

PATIENT

DRUGS (9)
  1. 476 (MESALAZINE/MESALAMINE) [Suspect]
     Active Substance: MESALAMINE
     Indication: CROHN^S DISEASE
     Dosage: 1500 MILLIGRAM, 3X/DAY:TID
     Route: 065
  2. ENTYVIO [Suspect]
     Active Substance: VEDOLIZUMAB
     Dosage: UNK
     Route: 042
     Dates: start: 20190516
  3. ENTYVIO [Suspect]
     Active Substance: VEDOLIZUMAB
     Indication: CROHN^S DISEASE
     Dosage: UNK MILLIGRAM
     Route: 042
     Dates: start: 201904
  4. PENTASA [Suspect]
     Active Substance: MESALAMINE
     Indication: PRODUCT USED FOR UNKNOWN INDICATION
     Dosage: 2 TABLETS THREE TIMES A DAY
     Route: 065
     Dates: start: 201302
  5. ENTYVIO [Suspect]
     Active Substance: VEDOLIZUMAB
     Dosage: UNK
     Route: 042
     Dates: start: 20190613
  6. ENTYVIO [Suspect]
     Active Substance: VEDOLIZUMAB
     Dosage: UNK
     Route: 042
     Dates: start: 20190723
  7. ADALIMUMAB [Concomitant]
     Active Substance: ADALIMUMAB
     Indication: PRODUCT USED FOR UNKNOWN INDICATION
  8. ENTYVIO [Suspect]
     Active Substance: VEDOLIZUMAB
     Dosage: UNK
     Route: 042
     Dates: start: 20190418
  9. ENTYVIO [Suspect]
     Active Substance: VEDOLIZUMAB
     Dosage: UNK
     Route: 042
     Dates: start: 20190404

REACTIONS (3)
  - Blood creatinine increased [Recovering/Resolving]
  - Azotaemia [Unknown]
  - Gravitational oedema [Unknown]

NARRATIVE: CASE EVENT DATE: 201908
